FAERS Safety Report 4471274-6 (Version None)
Quarter: 2004Q4

REPORT INFORMATION
  Report Type: 
  Country: None (occurrence: None)
  Receive Date: 20041011
  Receipt Date: 20041001
  Transmission Date: 20050328
  Serious: Yes (Other)
  Sender: FDA-Public Use
  Company Number: ES-MERCK-0410ESP00022

PATIENT
  Sex: Female

DRUGS (3)
  1. [THERAPY UNSPECIFIED] [Concomitant]
     Indication: HYPERTENSION
     Route: 065
  2. [THERAPY UNSPECIFIED] [Concomitant]
     Indication: BLOOD GLUCOSE INCREASED
     Route: 065
  3. VIOXX [Suspect]
     Indication: OSTEOARTHRITIS
     Route: 048
     Dates: start: 20010101, end: 20040930

REACTIONS (1)
  - DYSPNOEA [None]
